FAERS Safety Report 10968143 (Version 1)
Quarter: 2015Q1

REPORT INFORMATION
  Report Type: Spontaneous
  Country: US (occurrence: US)
  Receive Date: 20150330
  Receipt Date: 20150330
  Transmission Date: 20150721
  Serious: No
  Sender: FDA-Public Use
  Company Number: US-GLAXOSMITHKLINE-US2015GSK027328

PATIENT
  Sex: Female

DRUGS (1)
  1. VENTOLIN [Suspect]
     Active Substance: ALBUTEROL SULFATE
     Indication: BRONCHITIS
     Dosage: UNK, U

REACTIONS (4)
  - Hypersensitivity [Unknown]
  - Oropharyngeal pain [Unknown]
  - Dysphonia [Unknown]
  - Off label use [Unknown]
